FAERS Safety Report 10527222 (Version 1)
Quarter: 2014Q4

REPORT INFORMATION
  Report Type: Spontaneous
  Country: US (occurrence: US)
  Receive Date: 20141020
  Receipt Date: 20141020
  Transmission Date: 20150528
  Serious: Yes (Hospitalization, Other)
  Sender: FDA-Public Use
  Company Number: US-AMGEN-USASP2014079971

PATIENT
  Age: 38 Year
  Sex: Female

DRUGS (1)
  1. ENBREL [Suspect]
     Active Substance: ETANERCEPT
     Indication: RHEUMATOID ARTHRITIS
     Dosage: 50 MG, QWK
     Route: 065
     Dates: start: 20110101

REACTIONS (13)
  - Blood cholesterol abnormal [Not Recovered/Not Resolved]
  - Blood potassium abnormal [Unknown]
  - Speech disorder [Unknown]
  - Dysphagia [Unknown]
  - Renal failure [Not Recovered/Not Resolved]
  - Choking [Unknown]
  - Insomnia [Unknown]
  - Asthenia [Unknown]
  - Eating disorder [Unknown]
  - Contusion [Unknown]
  - Scleroderma [Unknown]
  - Syncope [Unknown]
  - Neuropathy peripheral [Not Recovered/Not Resolved]

NARRATIVE: CASE EVENT DATE: 2012
